FAERS Safety Report 26023240 (Version 1)
Quarter: 2025Q4

REPORT INFORMATION
  Report Type: Spontaneous
  Country: CN (occurrence: CN)
  Receive Date: 20251110
  Receipt Date: 20251110
  Transmission Date: 20260117
  Serious: Yes (Other)
  Sender: BEIGENE
  Company Number: CN-BEIGENE-BGN-2025-019161

PATIENT
  Age: 55 Year
  Weight: 68 kg

DRUGS (15)
  1. TISLELIZUMAB [Suspect]
     Active Substance: TISLELIZUMAB
     Indication: Bile duct cancer
     Dosage: 200 MILLIGRAM
  2. TISLELIZUMAB [Suspect]
     Active Substance: TISLELIZUMAB
     Dosage: 200 MILLIGRAM
     Route: 041
  3. TISLELIZUMAB [Suspect]
     Active Substance: TISLELIZUMAB
     Dosage: 200 MILLIGRAM
     Route: 041
  4. TISLELIZUMAB [Suspect]
     Active Substance: TISLELIZUMAB
     Dosage: 200 MILLIGRAM
  5. PACLITAXEL [Suspect]
     Active Substance: PACLITAXEL
     Indication: Bile duct cancer
     Dosage: 240 MILLIGRAM
     Route: 041
  6. PACLITAXEL [Suspect]
     Active Substance: PACLITAXEL
     Dosage: 240 MILLIGRAM
  7. CISPLATIN [Suspect]
     Active Substance: CISPLATIN
     Indication: Bile duct cancer
     Dosage: 30 MILLIGRAM
  8. CISPLATIN [Suspect]
     Active Substance: CISPLATIN
     Dosage: 30 MILLIGRAM
     Route: 033
  9. CISPLATIN [Suspect]
     Active Substance: CISPLATIN
     Dosage: 30 MILLIGRAM
  10. CISPLATIN [Suspect]
     Active Substance: CISPLATIN
     Dosage: 30 MILLIGRAM
     Route: 033
  11. DIPHENHYDRAMINE HYDROCHLORIDE [Concomitant]
     Active Substance: DIPHENHYDRAMINE HYDROCHLORIDE
     Indication: Premedication
     Dosage: UNK
  12. DEXAMETHASONE SODIUM PHOSPHATE [Concomitant]
     Active Substance: DEXAMETHASONE SODIUM PHOSPHATE
     Indication: Premedication
     Dosage: UNK
  13. CIMETIDINE [Concomitant]
     Active Substance: CIMETIDINE
     Indication: Premedication
     Dosage: UNK
  14. METOCLOPRAMIDE HYDROCHLORIDE [Concomitant]
     Active Substance: METOCLOPRAMIDE HYDROCHLORIDE
     Indication: Prophylaxis of nausea and vomiting
     Dosage: UNK
  15. ONDANSETRON HYDROCHLORIDE [Concomitant]
     Active Substance: ONDANSETRON HYDROCHLORIDE
     Indication: Prophylaxis of nausea and vomiting
     Dosage: UNK

REACTIONS (1)
  - Myelosuppression [Recovering/Resolving]
